FAERS Safety Report 4588416-4 (Version None)
Quarter: 2005Q1

REPORT INFORMATION
  Report Type: 
  Country: None (occurrence: None)
  Receive Date: 20050222
  Receipt Date: 20050214
  Transmission Date: 20050727
  Serious: Yes (Other)
  Sender: FDA-Public Use
  Company Number: GB-ABBOTT-05P-167-0290587-00

PATIENT
  Age: 78 Year
  Sex: Female
  Weight: 58 kg

DRUGS (11)
  1. ERYTHROMYCIN BASE [Suspect]
     Indication: LOWER RESPIRATORY TRACT INFECTION
     Route: 048
     Dates: start: 20050110, end: 20050115
  2. ISOSORBIDE MONONITRATE [Concomitant]
     Indication: DRUG USE FOR UNKNOWN INDICATION
  3. NICORANDIL [Concomitant]
     Indication: DRUG USE FOR UNKNOWN INDICATION
     Route: 048
  4. SIMVASTATIN [Concomitant]
     Indication: BLOOD PRESSURE INCREASED
     Route: 048
  5. FELODIPINE [Concomitant]
     Indication: BLOOD PRESSURE INCREASED
     Route: 048
  6. FELODIPINE [Concomitant]
     Indication: PAIN
  7. ATENOLOL [Concomitant]
     Indication: BLOOD PRESSURE INCREASED
     Route: 048
  8. ATENOLOL [Concomitant]
     Indication: PAIN
  9. LANSOPRAZOLE [Concomitant]
     Indication: BLOOD PRESSURE INCREASED
  10. LANSOPRAZOLE [Concomitant]
     Indication: PAIN
  11. CIPROFLOXACIN [Concomitant]
     Indication: LOWER RESPIRATORY TRACT INFECTION
     Route: 048
     Dates: start: 20050114, end: 20050124

REACTIONS (2)
  - BLOOD CREATININE INCREASED [None]
  - RENAL IMPAIRMENT [None]
